FAERS Safety Report 9057971 (Version 1)
Quarter: 2013Q1

REPORT INFORMATION
  Report Type: Spontaneous
  Country: GB (occurrence: GB)
  Receive Date: 20130210
  Receipt Date: 20130210
  Transmission Date: 20140127
  Serious: Yes (Death, Other)
  Sender: FDA-Public Use
  Company Number: GB-TEVA-384283ISR

PATIENT
  Age: 40 Year
  Sex: Female

DRUGS (2)
  1. VALPROIC ACID [Suspect]
     Indication: MOOD SWINGS
     Route: 048
  2. ZAPONEX [Suspect]
     Route: 048
     Dates: start: 20101116, end: 20121214

REACTIONS (3)
  - Pulmonary embolism [Fatal]
  - Upper respiratory tract infection [Not Recovered/Not Resolved]
  - Cough [Not Recovered/Not Resolved]
